FAERS Safety Report 6529977-5 (Version None)
Quarter: 2009Q4

REPORT INFORMATION
  Report Type: 
  Country: None (occurrence: None)
  Receive Date: 20091231
  Receipt Date: 20091218
  Transmission Date: 20100525
  Serious: Yes (Hospitalization)
  Sender: FDA-Public Use
  Company Number: 200811IM000324

PATIENT
  Age: 34 Year
  Sex: Male

DRUGS (10)
  1. IMMUKIN [Suspect]
     Indication: MYCOBACTERIUM ABSCESSUS INFECTION
     Dosage: SUBCUTANEOUS
     Route: 058
  2. IMMUKIN [Suspect]
     Indication: PSEUDOMONAS INFECTION
     Dosage: SUBCUTANEOUS
     Route: 058
  3. CLARITHROMYCIN [Concomitant]
  4. COLOMYCIN [Concomitant]
  5. MEROPENEM [Concomitant]
  6. MINOCYCLINE [Concomitant]
  7. OMEPRAZOLE [Concomitant]
  8. TOBRAMYCIN [Concomitant]
  9. AZITHROMYCIN [Concomitant]
  10. CIPROFLOXACIN [Concomitant]

REACTIONS (6)
  - CLOSTRIDIUM DIFFICILE COLITIS [None]
  - DEHYDRATION [None]
  - HYPOTENSION [None]
  - LUNG DISORDER [None]
  - PSEUDOMEMBRANOUS COLITIS [None]
  - TACHYCARDIA [None]
